FAERS Safety Report 16769996 (Version 1)
Quarter: 2019Q3

REPORT INFORMATION
  Report Type: Report from Study
  Country: GB (occurrence: GB)
  Receive Date: 20190904
  Receipt Date: 20190904
  Transmission Date: 20191005
  Serious: Yes (Other)
  Sender: FDA-Public Use
  Company Number: GB-UCBSA-2019037986

PATIENT
  Age: 27 Year
  Sex: Male

DRUGS (2)
  1. TIAGABINE [Concomitant]
     Active Substance: TIAGABINE
     Indication: PRODUCT USED FOR UNKNOWN INDICATION
     Dosage: 10 MILLIGRAM, 2X/DAY (BID)
     Route: 048
     Dates: start: 2007
  2. BRIVARACETAM [Suspect]
     Active Substance: BRIVARACETAM
     Indication: EPILEPSY
     Dosage: 25 MILLIGRAM, 2X/DAY (BID)
     Route: 048
     Dates: start: 20170901, end: 20190521

REACTIONS (4)
  - Drug ineffective [Unknown]
  - Generalised tonic-clonic seizure [Unknown]
  - Partial seizures [Unknown]
  - Behaviour disorder [Unknown]

NARRATIVE: CASE EVENT DATE: 20190521
